FAERS Safety Report 18747577 (Version 1)
Quarter: 2021Q1

REPORT INFORMATION
  Report Type: Report from Study
  Country: BR (occurrence: BR)
  Receive Date: 20210115
  Receipt Date: 20210115
  Transmission Date: 20210419
  Serious: Yes (Hospitalization, Other)
  Sender: FDA-Public Use
  Company Number: NVSC2021BR002584

PATIENT
  Age: 50 Year
  Sex: Male

DRUGS (1)
  1. COSENTYX [Suspect]
     Active Substance: SECUKINUMAB
     Indication: PSORIATIC ARTHROPATHY
     Dosage: UNK
     Route: 065
     Dates: start: 20190220, end: 20201020

REACTIONS (16)
  - Malaise [Unknown]
  - Asthenia [Unknown]
  - Fatigue [Unknown]
  - Coronary artery occlusion [Unknown]
  - Mobility decreased [Unknown]
  - Muscle spasms [Unknown]
  - Psoriasis [Not Recovered/Not Resolved]
  - Product dose omission issue [Unknown]
  - Immunodeficiency [Unknown]
  - Pain [Unknown]
  - Angina pectoris [Recovered/Resolved with Sequelae]
  - Feeling abnormal [Unknown]
  - Liver disorder [Unknown]
  - Muscle fatigue [Unknown]
  - Psoriatic arthropathy [Not Recovered/Not Resolved]
  - Chest pain [Unknown]

NARRATIVE: CASE EVENT DATE: 202002
